FAERS Safety Report 23562615 (Version 1)
Quarter: 2024Q1

REPORT INFORMATION
  Report Type: Spontaneous
  Country: US (occurrence: US)
  Receive Date: 20240226
  Receipt Date: 20240226
  Transmission Date: 20240409
  Serious: Yes (Hospitalization, Other)
  Sender: FDA-Public Use
  Company Number: US-SA-SAC20240219001222

PATIENT
  Age: 32 Year
  Sex: Male
  Weight: 115.5 kg

DRUGS (8)
  1. FABRAZYME [Suspect]
     Active Substance: AGALSIDASE BETA
     Dosage: 115 MG, QOW
     Route: 042
     Dates: start: 2004
  2. FENTANYL [Concomitant]
     Active Substance: FENTANYL\FENTANYL CITRATE
     Dosage: 12 MCG/HR
     Route: 062
     Dates: start: 20240115, end: 20240207
  3. IBUPROFEN [Concomitant]
     Active Substance: IBUPROFEN
     Dosage: 1 DF, BID
     Route: 048
     Dates: start: 20231116
  4. LEVOFLOXACIN [Concomitant]
     Active Substance: LEVOFLOXACIN
     Dosage: 1 DF, QDFOR 10 DAYS STARTING ON DAY 3 OF EACH CHEMOTHERAPY CYCLE
     Route: 048
     Dates: start: 20231213, end: 20240123
  5. ONDANSETRON [Concomitant]
     Active Substance: ONDANSETRON
     Indication: Nausea
     Dosage: 1 DF, BID
     Route: 048
     Dates: start: 20240122, end: 20240123
  6. ONDANSETRON [Concomitant]
     Active Substance: ONDANSETRON
     Indication: Vomiting
  7. OXYCODONE [Concomitant]
     Active Substance: OXYCODONE\OXYCODONE HYDROCHLORIDE
     Indication: Pain
     Dosage: 10 MG, Q4H
     Route: 048
     Dates: end: 20240207
  8. PANTOPRAZOLE [Concomitant]
     Active Substance: PANTOPRAZOLE
     Dosage: 1 DF, QD
     Route: 048
     Dates: start: 20230929

REACTIONS (3)
  - Acute kidney injury [Unknown]
  - Hypercalcaemia of malignancy [Unknown]
  - Pharyngitis streptococcal [Unknown]
